FAERS Safety Report 4641633-7 (Version None)
Quarter: 2005Q2

REPORT INFORMATION
  Report Type: 
  Country: None (occurrence: None)
  Receive Date: 20050420
  Receipt Date: 20030522
  Transmission Date: 20051028
  Serious: Yes (Hospitalization)
  Sender: FDA-Public Use
  Company Number: D01200300673

PATIENT
  Age: 44 Year
  Sex: Female

DRUGS (7)
  1. (SR57746 OR PLACEBO) [Suspect]
     Indication: CHEMOTHERAPY NEUROTOXICITY ATTENUATION
     Dosage: 1 MG QD, 85 MG/M2 Q2W ORAL
     Route: 048
     Dates: start: 20030331
  2. OXALIPLATIN [Suspect]
     Dosage: 400 MG/M2  INTRAVENOUS NOS
     Route: 042
     Dates: start: 20030508, end: 20030508
  3. FLUOROURACIL [Suspect]
     Dosage: 600 MG/M2 AS 22 HOURS INTRAVENOUS NOS
     Route: 042
     Dates: start: 20030508, end: 20030509
  4. LEUCOVORIN CALCIUM [Suspect]
     Dosage: 200 MG/M2 AS 2 HOURS INFUSION INTRAVENOUS NOS
     Route: 042
     Dates: start: 20030508, end: 20030509
  5. ATIVAN [Concomitant]
  6. MORPHINE SULFATE [Concomitant]
  7. MAXERAN (METOCLOPRAMIDE HCL) [Concomitant]

REACTIONS (10)
  - BACILLUS INFECTION [None]
  - BACTERAEMIA [None]
  - BLOOD CHLORIDE INCREASED [None]
  - BLOOD CULTURE POSITIVE [None]
  - FEBRILE INFECTION [None]
  - HAEMOGLOBIN DECREASED [None]
  - KLEBSIELLA INFECTION [None]
  - NAUSEA [None]
  - VAGINAL INFECTION [None]
  - WHITE BLOOD CELL COUNT DECREASED [None]
